FAERS Safety Report 4314521-3 (Version None)
Quarter: 2004Q1

REPORT INFORMATION
  Report Type: 
  Country: None (occurrence: None)
  Receive Date: 20040308
  Receipt Date: 20040224
  Transmission Date: 20041129
  Serious: Yes (Congenital Anomaly)
  Sender: FDA-Public Use
  Company Number: 04P-056-0252043-00

PATIENT
  Age: 1 Day

DRUGS (6)
  1. ERYTHROCINE (ERYTHROMYCIN STEARATE TABLETS) (ERYTHROMYCIN STEARATE) [Suspect]
  2. CEFACLOR [Suspect]
  3. PARACETAMOL [Suspect]
  4. ALPHA-AMYLASE [Suspect]
  5. NASONEX [Suspect]
  6. RHINOFLUIMUCIL [Suspect]

REACTIONS (7)
  - ABORTION INDUCED [None]
  - ADACTYLY [None]
  - COMPLICATIONS OF MATERNAL EXPOSURE TO THERAPEUTIC DRUGS [None]
  - DRUG EXPOSURE DURING PREGNANCY [None]
  - LIMB REDUCTION DEFECT [None]
  - MULTIPLE CONGENITAL ABNORMALITIES [None]
  - RETROGNATHIA [None]
